FAERS Safety Report 10258289 (Version 1)
Quarter: 2014Q2

REPORT INFORMATION
  Report Type: Spontaneous
  Country: AR (occurrence: AR)
  Receive Date: 20140625
  Receipt Date: 20140625
  Transmission Date: 20141212
  Serious: Yes (Hospitalization)
  Sender: FDA-Public Use
  Company Number: AR-BRISTOL-MYERS SQUIBB COMPANY-21041058

PATIENT
  Sex: Male

DRUGS (1)
  1. YERVOY [Suspect]

REACTIONS (2)
  - Headache [Unknown]
  - Metastases to central nervous system [Unknown]
